FAERS Safety Report 5622653-2 (Version None)
Quarter: 2008Q1

REPORT INFORMATION
  Report Type: 
  Country: None (occurrence: None)
  Receive Date: 20080211
  Receipt Date: 20080211
  Transmission Date: 20080703
  Serious: Yes (Disabling)
  Sender: FDA-Public Use
  Company Number: None

PATIENT
  Age: 73 Year
  Sex: Female
  Weight: 80.2867 kg

DRUGS (1)
  1. LIPITOR [Suspect]
     Indication: HYPERLIPIDAEMIA
     Dates: start: 19970101, end: 20070101

REACTIONS (9)
  - COGNITIVE DISORDER [None]
  - FALL [None]
  - GAIT DISTURBANCE [None]
  - GLOBAL AMNESIA [None]
  - IMPAIRED DRIVING ABILITY [None]
  - MOTOR DYSFUNCTION [None]
  - MYALGIA [None]
  - NAUSEA [None]
  - VERTIGO [None]
